FAERS Safety Report 4491315-X (Version None)
Quarter: 2004Q4

REPORT INFORMATION
  Report Type: 
  Country: None (occurrence: None)
  Receive Date: 20041101
  Receipt Date: 20041101
  Transmission Date: 20050328
  Serious: Yes (Death)
  Sender: FDA-Public Use
  Company Number: None

PATIENT
  Sex: Female
  Weight: 87.9 kg

DRUGS (5)
  1. METHIMAZOLE [Suspect]
     Indication: BASEDOW'S DISEASE
     Dosage: 50MG   TID   ORAL
     Route: 048
  2. ATENOLOL [Concomitant]
  3. TRAZODONE HCL [Concomitant]
  4. BENADRYL [Concomitant]
  5. IBUPROFEN [Concomitant]

REACTIONS (5)
  - AGRANULOCYTOSIS [None]
  - COUGH [None]
  - NEUTROPENIA [None]
  - PHARYNGITIS [None]
  - PYREXIA [None]
